FAERS Safety Report 7423961-5 (Version None)
Quarter: 2011Q2

REPORT INFORMATION
  Report Type: 
  Country: None (occurrence: None)
  Receive Date: 20110419
  Receipt Date: 20110208
  Transmission Date: 20111010
  Serious: Yes (Other)
  Sender: FDA-Public Use
  Company Number: B0699428A

PATIENT
  Sex: Female

DRUGS (17)
  1. CROMOLYN SODIUM [Concomitant]
     Indication: ASTHMA
     Route: 055
  2. CALCIUM [Concomitant]
  3. LAMICTAL [Suspect]
     Dosage: 100MG TWICE PER DAY
     Route: 065
     Dates: start: 20101222
  4. VITAMIN D [Concomitant]
  5. MONTELUKAST [Concomitant]
     Indication: ASTHMA
  6. PARACETAMOL [Concomitant]
  7. FISH OIL [Concomitant]
  8. SPIRONOLACTONE [Concomitant]
  9. ALENDRONATE SODIUM [Concomitant]
     Indication: OSTEOPOROSIS
  10. POTASSIUM CHLORIDE [Concomitant]
  11. LOSARTAN POTASSIUM [Concomitant]
  12. FUROSEMIDE [Concomitant]
  13. SERETIDE [Concomitant]
     Route: 055
  14. VENTOLIN [Concomitant]
     Route: 055
  15. MULTI-VITAMINS [Concomitant]
  16. LAMICTAL [Suspect]
     Indication: EPILEPSY
     Dosage: 100MG TWICE PER DAY
     Route: 065
     Dates: start: 20080101
  17. KETOGAN [Concomitant]

REACTIONS (4)
  - DRUG INEFFECTIVE [None]
  - SYNCOPE [None]
  - DISSOCIATION [None]
  - DIZZINESS POSTURAL [None]
